FAERS Safety Report 18457193 (Version 2)
Quarter: 2020Q4

REPORT INFORMATION
  Report Type: Spontaneous
  Country: US (occurrence: US)
  Receive Date: 20201103
  Receipt Date: 20201223
  Transmission Date: 20210114
  Serious: Yes (Hospitalization)
  Sender: FDA-Public Use
  Company Number: US-ASTRAZENECA-2020SF42250

PATIENT
  Sex: Male
  Weight: 104.3 kg

DRUGS (3)
  1. BREZTRI AEROSPHERE [Suspect]
     Active Substance: BUDESONIDE\FORMOTEROL\GLYCOPYRRONIUM
     Indication: CHRONIC OBSTRUCTIVE PULMONARY DISEASE
     Dosage: 160/9/4.8 MCG INHALATION TWICE DAILY
     Route: 055
     Dates: start: 202010
  2. METROPOLOL [Suspect]
     Active Substance: METOPROLOL
     Route: 065
  3. AVASTIN [Concomitant]
     Active Substance: BEVACIZUMAB

REACTIONS (1)
  - Pneumonia [Unknown]
